FAERS Safety Report 8469366-X (Version None)
Quarter: 2012Q2

REPORT INFORMATION
  Report Type: 
  Country: None (occurrence: None)
  Receive Date: 20120626
  Receipt Date: 20120619
  Transmission Date: 20120825
  Serious: Yes (Hospitalization, Other)
  Sender: FDA-Public Use
  Company Number: KR-UCBSA-032281

PATIENT
  Age: 58 Year
  Sex: Female
  Weight: 58.1 kg

DRUGS (12)
  1. CIMZIA [Suspect]
     Route: 058
     Dates: start: 20110530
  2. METHOTREXATE [Concomitant]
     Indication: RHEUMATOID ARTHRITIS
     Route: 048
     Dates: start: 20080507
  3. GATIFLOXACIN [Concomitant]
     Indication: SJOGREN'S SYNDROME
     Dosage: 1 DROP A DAY
     Route: 048
     Dates: start: 20090401
  4. CIMZIA [Suspect]
     Indication: RHEUMATOID ARTHRITIS
     Dosage: FROM 03-JUN-2010 TO 29-JUN-2010: 400 MG/ 2 WEEKS; FROM 13-JUL-2010 TO 02-NOV-2010: 200 MG/ 2 WEEKS
     Route: 058
     Dates: start: 20100603, end: 20101102
  5. NABUMETONE [Concomitant]
     Indication: RHEUMATOID ARTHRITIS
     Dosage: 1 TABLET A DAY
     Route: 048
     Dates: start: 20100407
  6. ZOLPIDEM [Concomitant]
     Indication: INSOMNIA
     Dosage: 1 TABLET A DAY
     Route: 048
     Dates: start: 20101117
  7. CIMZIA [Suspect]
     Route: 058
     Dates: start: 20101117, end: 20110419
  8. ATENOLOL [Concomitant]
     Indication: HYPERTENSION
     Dosage: 1 TABLET A DAY
     Route: 048
     Dates: start: 20080407
  9. DEFLAZACORT [Concomitant]
     Indication: RHEUMATOID ARTHRITIS
     Dosage: 0.5 TABLET A DAY
     Route: 048
     Dates: start: 20100702
  10. DOMPERIDONE MALEATE [Concomitant]
     Indication: DYSPEPSIA
     Route: 048
     Dates: start: 20100407
  11. ULTRACET [Concomitant]
     Indication: RHEUMATOID ARTHRITIS
     Dosage: 2 TABLETS A DAY
     Route: 048
     Dates: start: 20100507
  12. FOLIC ACID [Concomitant]
     Indication: ANAEMIA PROPHYLAXIS
     Dosage: 1 TABLET A DAY
     Route: 048
     Dates: start: 20090902

REACTIONS (1)
  - PNEUMONIA [None]
